FAERS Safety Report 9227932 (Version 3)
Quarter: 2013Q2

REPORT INFORMATION
  Report Type: Spontaneous
  Country: GB (occurrence: GB)
  Receive Date: 20130412
  Receipt Date: 20130502
  Transmission Date: 20140414
  Serious: Yes (Hospitalization, Other)
  Sender: FDA-Public Use
  Company Number: GB-PFIZER INC-2013115564

PATIENT
  Age: 64 Year
  Sex: Male
  Weight: 82.55 kg

DRUGS (6)
  1. IBUPROFEN [Suspect]
     Indication: SCIATICA
     Dosage: 400MG THREE TIMES DAILY INITIALLY BUT PATIENT REDUCED THIS TO 400MG DAILY AFTER ONE-TWO DAYS.
     Route: 048
     Dates: start: 20130308
  2. IBUPROFEN [Suspect]
     Dosage: 400MG DAILY AFTER ONE-TWO DAYS.
     Route: 048
     Dates: end: 20130312
  3. ASPIRIN [Suspect]
     Indication: CARDIOVASCULAR EVENT PROPHYLAXIS
     Dosage: 75 MG, 1X/DAY
     Route: 048
     Dates: end: 20130314
  4. CO-DYDRAMOL [Suspect]
     Indication: SCIATICA
     Dosage: 10/500
  5. PERINDOPRIL ERBUMINE [Concomitant]
     Route: 065
  6. BENDROFLUMETHIAZIDE [Concomitant]
     Route: 065

REACTIONS (6)
  - Upper gastrointestinal haemorrhage [Recovered/Resolved]
  - Nausea [Unknown]
  - Vomiting [Unknown]
  - Melaena [Unknown]
  - Dizziness [Unknown]
  - Lethargy [Unknown]
